FAERS Safety Report 18087596 (Version 1)
Quarter: 2020Q3

REPORT INFORMATION
  Report Type: Spontaneous
  Country: US (occurrence: US)
  Receive Date: 20200729
  Receipt Date: 20200729
  Transmission Date: 20201103
  Serious: Yes (Life-Threatening, Other)
  Sender: FDA-Public Use
  Company Number: US-PFIZER INC-2020286511

PATIENT
  Age: 43 Year
  Sex: Female
  Weight: 64 kg

DRUGS (8)
  1. THIOPENTAL [Concomitant]
     Active Substance: THIOPENTAL
     Indication: ANAESTHESIA
     Dosage: 200 MG
     Route: 042
  2. ISOFLURANE. [Concomitant]
     Active Substance: ISOFLURANE
     Indication: ANAESTHESIA
     Dosage: UNK
  3. SUCCINYLCHOLINE CHLORIDE. [Interacting]
     Active Substance: SUCCINYLCHOLINE CHLORIDE
     Dosage: 120 MG (PREPARATION FOR INTUBATION)
     Route: 042
  4. TUBOCURARINE. [Concomitant]
     Active Substance: TUBOCURARINE
     Indication: ANAESTHESIA
     Dosage: 3 MG
     Route: 042
  5. SUFENTANIL CITRATE. [Suspect]
     Active Substance: SUFENTANIL CITRATE
     Dosage: 50 UG (0.8 MCG/KG, IN TWO DIVIDED DOSES 3 MIN APART)
     Route: 042
  6. DROPERIDOL. [Concomitant]
     Active Substance: DROPERIDOL
     Indication: PREMEDICATION
     Dosage: 1.25 MG (45 MIN PRIOR TO INDUCTION)
     Route: 030
  7. OXYGEN. [Concomitant]
     Active Substance: OXYGEN
     Dosage: UNK (RECEIVING OXYGEN BY MASK)
  8. MORPHINE [Concomitant]
     Active Substance: MORPHINE
     Indication: PREMEDICATION
     Dosage: 8 MG (45MIN PRIOR TO INDUCTION)
     Route: 030

REACTIONS (4)
  - Drug interaction [Recovered/Resolved]
  - Cardiac arrest [Recovered/Resolved]
  - Atrioventricular block second degree [Recovered/Resolved]
  - Sinus bradycardia [Recovered/Resolved]
